FAERS Safety Report 9529281 (Version 1)
Quarter: 2013Q1

REPORT INFORMATION
  Report Type: Spontaneous
  Country: US (occurrence: None)
  Receive Date: 20130329
  Receipt Date: 20130329
  Transmission Date: 20140127
  Serious: No
  Sender: FDA-Public Use
  Company Number: 1000042662

PATIENT
  Age: 74 Year
  Sex: Male

DRUGS (6)
  1. LINZESS [Suspect]
     Dates: start: 20130212
  2. PRADAXA (DABIGATRAN ETEXILATE MESILATE) (DABIGATRAN ETEXILATE MESILATE) [Concomitant]
  3. VITAMIN D (VITAMIN D) (VITAMIN D) [Concomitant]
  4. PROBIOTIC NOS (PROBIOTIC NOS) (PROBIOTIC NOS) [Concomitant]
  5. CELEBREX (CELECOXIB)(CELECOXIB0 [Concomitant]
  6. HYZAAR (HYZAAR)(HYZZAR) [Concomitant]

REACTIONS (1)
  - Diarrhoea [None]
